FAERS Safety Report 21998851 (Version 1)
Quarter: 2023Q1

REPORT INFORMATION
  Report Type: Spontaneous
  Country: US (occurrence: None)
  Receive Date: 20230214
  Receipt Date: 20230214
  Transmission Date: 20230417
  Serious: No
  Sender: FDA-Public Use
  Company Number: None

PATIENT
  Age: 37 Year
  Sex: Male
  Weight: 93.71 kg

DRUGS (20)
  1. SORAFENIB [Suspect]
     Active Substance: SORAFENIB
     Indication: Acute myeloid leukaemia
     Dosage: FREQUENCY : DAILY;?
     Route: 048
     Dates: start: 202301
  2. AMLODIPINE [Concomitant]
  3. ATOVAQUONE [Concomitant]
     Active Substance: ATOVAQUONE
  4. MAGOX [Concomitant]
  5. MELATONIN [Concomitant]
     Active Substance: MELATONIN
  6. CYCLOBENZAPRINE [Concomitant]
     Active Substance: CYCLOBENZAPRINE
  7. DICYCLOMINE [Concomitant]
     Active Substance: DICYCLOMINE HYDROCHLORIDE
  8. HYDROMORPHONE [Concomitant]
     Active Substance: HYDROMORPHONE
  9. IMODIUM [Concomitant]
     Active Substance: LOPERAMIDE HYDROCHLORIDE
  10. JAKAFI [Concomitant]
     Active Substance: RUXOLITINIB
  11. ONDANSETRON [Concomitant]
     Active Substance: ONDANSETRON
  12. PANTOPRAZOLE [Concomitant]
     Active Substance: PANTOPRAZOLE
  13. POSACONAZOLE [Concomitant]
     Active Substance: POSACONAZOLE
  14. POTASSIUM CHLROIDE ER [Concomitant]
  15. PREVYMIS [Concomitant]
     Active Substance: LETERMOVIR
  16. QUETIAPINE [Concomitant]
     Active Substance: QUETIAPINE
  17. TACROLIMUS [Concomitant]
     Active Substance: TACROLIMUS
  18. TRAMADOL [Concomitant]
     Active Substance: TRAMADOL
  19. VALACYCLOVIR [Concomitant]
     Active Substance: VALACYCLOVIR HYDROCHLORIDE
  20. VITAMIN D [Concomitant]
     Active Substance: VITAMIN D NOS

REACTIONS (2)
  - Hepatic function abnormal [None]
  - Condition aggravated [None]
